FAERS Safety Report 13433429 (Version 1)
Quarter: 2017Q2

REPORT INFORMATION
  Report Type: Spontaneous
  Country: IE (occurrence: IN)
  Receive Date: 20170412
  Receipt Date: 20170412
  Transmission Date: 20170830
  Serious: No
  Sender: FDA-Public Use
  Company Number: IE-AMNEAL PHARMACEUTICALS-2016AMN00504

PATIENT

DRUGS (1)
  1. SILDENAFIL. [Suspect]
     Active Substance: SILDENAFIL
     Dosage: 20 MG, UNK ONE BOTTLE PACKAGE SIZE 30 COUNT

REACTIONS (2)
  - Drug ineffective [Unknown]
  - Off label use [Unknown]
